FAERS Safety Report 12962653 (Version 2)
Quarter: 2016Q4

REPORT INFORMATION
  Report Type: Report from Study
  Country: None (occurrence: US)
  Receive Date: 20161121
  Receipt Date: 20161224
  Transmission Date: 20170207
  Serious: Yes (Hospitalization, Other)
  Sender: FDA-Public Use
  Company Number: US-AMAG PHARMACEUTICALS, INC.-AMAG201602735

PATIENT

DRUGS (11)
  1. VALTREX [Concomitant]
     Active Substance: VALACYCLOVIR HYDROCHLORIDE
     Indication: PROPHYLAXIS
     Dosage: UNK
     Route: 065
  2. FOLIC ACID. [Concomitant]
     Active Substance: FOLIC ACID
     Route: 065
  3. MAKENA [Suspect]
     Active Substance: HYDROXYPROGESTERONE CAPROATE
     Indication: PRODUCT USED FOR UNKNOWN INDICATION
     Dosage: 250 MG, WEEKLY
     Route: 030
     Dates: start: 20160628, end: 20161108
  4. METFORMIN [Concomitant]
     Active Substance: METFORMIN HYDROCHLORIDE
     Dosage: 500 MG, UNK
     Route: 048
  5. PRENATAL VITAMINS [Concomitant]
     Active Substance: VITAMINS
     Dosage: UNK
     Route: 048
     Dates: start: 20160602
  6. LEVOTHYROXINE. [Concomitant]
     Active Substance: LEVOTHYROXINE
     Route: 048
  7. HUMULIN BASAL NPH [Concomitant]
     Indication: TYPE 2 DIABETES MELLITUS
     Dosage: UNK
     Route: 065
     Dates: start: 20160628
  8. FLUOXETINE [Concomitant]
     Active Substance: FLUOXETINE HYDROCHLORIDE
     Route: 065
  9. CELESTONE [Concomitant]
     Active Substance: BETAMETHASONE
     Indication: GESTATIONAL HYPERTENSION
     Dosage: UNK
     Route: 030
     Dates: start: 20161110, end: 20161111
  10. LANTUS [Concomitant]
     Active Substance: INSULIN GLARGINE
     Dosage: 30 UNITS, UNK
     Route: 065
  11. GLIMEPIRIDE. [Concomitant]
     Active Substance: GLIMEPIRIDE
     Dosage: UNK
     Route: 065

REACTIONS (3)
  - Premature delivery [Recovered/Resolved]
  - Hypertension [Unknown]
  - Induced labour [Recovered/Resolved]

NARRATIVE: CASE EVENT DATE: 20161117
